FAERS Safety Report 21387531 (Version 2)
Quarter: 2023Q1

REPORT INFORMATION
  Report Type: Spontaneous
  Country: CO (occurrence: CO)
  Receive Date: 20220928
  Receipt Date: 20230119
  Transmission Date: 20230418
  Serious: Yes (Other)
  Sender: FDA-Public Use
  Company Number: CO-AMGEN-COLSP2022165361

PATIENT
  Age: 59 Year
  Sex: Male
  Weight: 64 kg

DRUGS (9)
  1. MVASI [Suspect]
     Active Substance: BEVACIZUMAB-AWWB
     Indication: Lung neoplasm malignant
     Dosage: 480 MILLIGRAM, QD
     Route: 042
     Dates: start: 20220830
  2. NEULASTA [Suspect]
     Active Substance: PEGFILGRASTIM
     Indication: Lung neoplasm malignant
     Dosage: 6 MILLIGRAM, QD
     Route: 058
     Dates: start: 20220830
  3. FOSAPREPITANT [Concomitant]
     Active Substance: FOSAPREPITANT
     Indication: Lung neoplasm malignant
     Dosage: 150 MILLIGRAM, BOLUS, FOR 0MIN. - ADMINISTER DURING THE DAYS:V
     Route: 040
     Dates: start: 20220830
  4. PALONOSETRON [Concomitant]
     Active Substance: PALONOSETRON
     Indication: Lung neoplasm malignant
     Dosage: .25 MILLIGRAM, QD
     Route: 040
     Dates: start: 20220830
  5. DEXAMETHASONE PHOSPHATE [Concomitant]
     Active Substance: DEXAMETHASONE PHOSPHATE
     Indication: Lung neoplasm malignant
     Dosage: 16 MILLIGRAM, QD
     Route: 040
     Dates: start: 20220830
  6. OXALIPLATIN [Concomitant]
     Active Substance: OXALIPLATIN
     Indication: Lung neoplasm malignant
     Dosage: 226.2 MILLIGRAM, QD
     Route: 040
     Dates: start: 20220830
  7. CAPECITABINE [Concomitant]
     Active Substance: CAPECITABINE
     Indication: Lung neoplasm malignant
     Dosage: 3000 MILLIGRAM, QD
     Route: 048
     Dates: start: 20220830
  8. ONDANSETRON [Concomitant]
     Active Substance: ONDANSETRON
     Indication: Lung neoplasm malignant
     Dosage: 8 MILLIGRAM, Q8H
     Route: 048
     Dates: start: 20220830
  9. PREDNISOLONE [Concomitant]
     Active Substance: PREDNISOLONE
     Dosage: UNK

REACTIONS (5)
  - Cushing^s syndrome [Not Recovered/Not Resolved]
  - Paraesthesia [Not Recovered/Not Resolved]
  - Chest pain [Recovered/Resolved]
  - Cough [Unknown]
  - Dyspnoea [Recovered/Resolved]

NARRATIVE: CASE EVENT DATE: 20220921
